FAERS Safety Report 5725355-7 (Version None)
Quarter: 2008Q2

REPORT INFORMATION
  Report Type: 
  Country: None (occurrence: None)
  Receive Date: 20080501
  Receipt Date: 20080424
  Transmission Date: 20081010
  Serious: Yes (Other)
  Sender: FDA-Public Use
  Company Number: GR-PFIZER INC-2008035721

PATIENT
  Sex: Male

DRUGS (3)
  1. XANAX [Suspect]
     Indication: ANXIETY
     Route: 048
  2. XANAX [Suspect]
     Indication: PANIC DISORDER
  3. INDERAL [Concomitant]
     Dosage: TEXT:1/2 TABLET

REACTIONS (3)
  - DIZZINESS [None]
  - HYPERTENSION [None]
  - TACHYCARDIA [None]
